FAERS Safety Report 16803171 (Version 1)
Quarter: 2019Q3

REPORT INFORMATION
  Report Type: Spontaneous
  Country: US (occurrence: US)
  Receive Date: 20190913
  Receipt Date: 20190913
  Transmission Date: 20191005
  Serious: No
  Sender: FDA-Public Use
  Company Number: US-NOVOPROD-677854

PATIENT
  Age: 81 Year
  Sex: Male
  Weight: 185 kg

DRUGS (1)
  1. XULTOPHY 100/3.6 [Suspect]
     Active Substance: INSULIN DEGLUDEC\LIRAGLUTIDE
     Indication: TYPE 2 DIABETES MELLITUS
     Dosage: 40 IU, QD
     Route: 058
     Dates: start: 201907, end: 20190730

REACTIONS (6)
  - Drug ineffective [Unknown]
  - Increased appetite [Recovered/Resolved]
  - Dizziness [Recovered/Resolved]
  - Blood glucose increased [Not Recovered/Not Resolved]
  - Weight increased [Unknown]
  - Nausea [Recovered/Resolved]

NARRATIVE: CASE EVENT DATE: 201907
